FAERS Safety Report 10083343 (Version 1)
Quarter: 2014Q2

REPORT INFORMATION
  Report Type: Spontaneous
  Country: US (occurrence: None)
  Receive Date: 20140415
  Receipt Date: 20140415
  Transmission Date: 20141212
  Serious: No
  Sender: FDA-Public Use
  Company Number: None

PATIENT
  Age: 59 Year
  Sex: Female
  Weight: 74.84 kg

DRUGS (2)
  1. PREPOPIK [Suspect]
     Indication: ENDOSCOPY
     Dosage: 2 PACKETS AND 1 MAGNESIUM CITR TAKEN BY MOUTH
     Route: 048
     Dates: start: 20140406, end: 20140407
  2. PREPOPIK [Suspect]
     Indication: COLONOSCOPY
     Dosage: 2 PACKETS AND 1 MAGNESIUM CITR TAKEN BY MOUTH
     Route: 048
     Dates: start: 20140406, end: 20140407

REACTIONS (7)
  - Vomiting [None]
  - Cold sweat [None]
  - Chills [None]
  - Nausea [None]
  - Dizziness [None]
  - Abdominal pain [None]
  - Abdominal distension [None]
